FAERS Safety Report 8423486-4 (Version None)
Quarter: 2012Q2

REPORT INFORMATION
  Report Type: 
  Country: None (occurrence: None)
  Receive Date: 20120608
  Receipt Date: 20120601
  Transmission Date: 20120825
  Serious: Yes (Other)
  Sender: FDA-Public Use
  Company Number: GB-B.I. PHARMACEUTICALS,INC./RIDGEFIELD-2012-UK-00742UK

PATIENT
  Age: 75 Year
  Sex: Male

DRUGS (9)
  1. ASPIRIN [Concomitant]
  2. CANDESARTAN CILEXETIL [Concomitant]
  3. SPIRONOLACTONE [Concomitant]
  4. GLICLAZIDE [Concomitant]
  5. LANTUS [Concomitant]
  6. PRADAXA [Suspect]
     Route: 048
  7. SIMVASTATIN [Concomitant]
  8. BISOPROLOL FUMARATE [Concomitant]
  9. FUROSEMIDE [Concomitant]

REACTIONS (3)
  - FAECES DISCOLOURED [None]
  - MUSCLE SPASMS [None]
  - BACK PAIN [None]
